FAERS Safety Report 12464250 (Version 1)
Quarter: 2016Q2

REPORT INFORMATION
  Report Type: Spontaneous
  Country: US (occurrence: None)
  Receive Date: 20160613
  Receipt Date: 20160613
  Transmission Date: 20160815
  Serious: Yes (Other)
  Sender: FDA-Public Use
  Company Number: None

PATIENT
  Age: 31 Year
  Sex: Female
  Weight: 70.31 kg

DRUGS (2)
  1. PROPRANOLOL [Concomitant]
     Active Substance: PROPRANOLOL\PROPRANOLOL HYDROCHLORIDE
  2. MIRENA [Suspect]
     Active Substance: LEVONORGESTREL
     Dates: start: 20160517, end: 20160602

REACTIONS (9)
  - Panic attack [None]
  - Palpitations [None]
  - Anxiety [None]
  - Depression [None]
  - Feeling abnormal [None]
  - Impaired work ability [None]
  - Chest pain [None]
  - Emotional distress [None]
  - Pain in extremity [None]

NARRATIVE: CASE EVENT DATE: 20160517
